FAERS Safety Report 16111651 (Version 2)
Quarter: 2019Q2

REPORT INFORMATION
  Report Type: Spontaneous
  Country: JP (occurrence: JP)
  Receive Date: 20190325
  Receipt Date: 20190408
  Transmission Date: 20190711
  Serious: Yes (Other)
  Sender: FDA-Public Use
  Company Number: JP-CELGENEUS-JPN-20190307329

PATIENT
  Age: 62 Year
  Sex: Male

DRUGS (4)
  1. ABRAXANE [Suspect]
     Active Substance: PACLITAXEL
     Dosage: 125 MG/SQ. METER
     Route: 041
     Dates: start: 20190322, end: 20190322
  2. GEMCITABINE [Suspect]
     Active Substance: GEMCITABINE\GEMCITABINE HYDROCHLORIDE
     Indication: PANCREATIC CARCINOMA
     Dosage: 1000 MILLIGRAM/SQ. METER
     Route: 041
     Dates: start: 20190306, end: 20190306
  3. GEMCITABINE [Suspect]
     Active Substance: GEMCITABINE\GEMCITABINE HYDROCHLORIDE
     Dosage: 1000 MILLIGRAM/SQ. METER
     Route: 041
     Dates: start: 20190322, end: 20190322
  4. ABRAXANE [Suspect]
     Active Substance: PACLITAXEL
     Indication: PANCREATIC CARCINOMA
     Dosage: 125 MG/SQ. METER
     Route: 041
     Dates: start: 20190306, end: 20190306

REACTIONS (1)
  - Cholangitis [Recovering/Resolving]

NARRATIVE: CASE EVENT DATE: 20190307
